FAERS Safety Report 23080132 (Version 2)
Quarter: 2023Q4

REPORT INFORMATION
  Report Type: Spontaneous
  Country: US (occurrence: US)
  Receive Date: 20231018
  Receipt Date: 20231101
  Transmission Date: 20240110
  Serious: No
  Sender: FDA-Public Use
  Company Number: US-SANOFI-01803990

PATIENT
  Age: 71 Year
  Sex: Male
  Weight: 87.08 kg

DRUGS (6)
  1. DUPIXENT [Suspect]
     Active Substance: DUPILUMAB
     Indication: Eczema
     Dosage: 300 MG, QOW
     Route: 058
     Dates: start: 20220316
  2. DUTASTERIDE [Concomitant]
     Active Substance: DUTASTERIDE
     Indication: Benign prostatic hyperplasia
     Dosage: 0.5 MG, QOD
     Route: 048
     Dates: start: 20150115
  3. EZETIMIBE [Concomitant]
     Active Substance: EZETIMIBE
     Indication: Blood cholesterol
     Dosage: 10 MG, QD
     Route: 048
     Dates: start: 20150115
  4. VALACYCLOVIR [Concomitant]
     Active Substance: VALACYCLOVIR HYDROCHLORIDE
     Indication: Oral herpes
     Dosage: 1 G; SAME NEEDED/ 1 MORNING 1 NIGHT/ 1 G
     Route: 048
     Dates: start: 20150115
  5. SIMVASTATIN [Concomitant]
     Active Substance: SIMVASTATIN
     Indication: Blood cholesterol
     Dosage: 40 MG, QD
     Route: 048
     Dates: start: 20150115
  6. CLOBETASOL [Concomitant]
     Active Substance: CLOBETASOL
     Indication: Dermatitis
     Dosage: SAME NEEDED/ THIN SPOT APPLICATION
     Route: 061
     Dates: start: 20211208

REACTIONS (2)
  - Accidental exposure to product [Unknown]
  - Exposure via skin contact [Unknown]

NARRATIVE: CASE EVENT DATE: 20231013
